FAERS Safety Report 18172603 (Version 2)
Quarter: 2020Q3

REPORT INFORMATION
  Report Type: Spontaneous
  Country: US (occurrence: US)
  Receive Date: 20200820
  Receipt Date: 20200922
  Transmission Date: 20201103
  Serious: Yes (Other)
  Sender: FDA-Public Use
  Company Number: US-VIFOR (INTERNATIONAL) INC.-VIT-2020-08701

PATIENT
  Age: 47 Year
  Sex: Male

DRUGS (23)
  1. BUDESONIDE. [Concomitant]
     Active Substance: BUDESONIDE
     Dosage: 0.5 MG/2 ML
  2. FLOSANE ALLERGY RELIEF [Concomitant]
     Dosage: ACTUATION NASAL SPRAY, SUSPENSION, SPRAY 1 SPRAY IN BOTH NOSTRILS
  3. BROVANA [Concomitant]
     Active Substance: ARFORMOTEROL TARTRATE
     Dosage: 15 MCG/2 ML, TAKE 2 PUFF
  4. LOSARTAN. [Concomitant]
     Active Substance: LOSARTAN
     Dosage: AS DIRECTED
     Route: 048
  5. RENVELA [Concomitant]
     Active Substance: SEVELAMER CARBONATE
     Route: 048
  6. TUMS ULTRA [Concomitant]
     Active Substance: CALCIUM CARBONATE
     Dosage: 400 MG CALCIUM (1000 MG)
     Route: 048
  7. XIFAXAN [Concomitant]
     Active Substance: RIFAXIMIN
  8. MIRCERA [Suspect]
     Active Substance: METHOXY POLYETHYLENE GLYCOL-EPOETIN BETA
     Dates: start: 20200719, end: 20200720
  9. ALBUTEROL SULFATE. [Concomitant]
     Active Substance: ALBUTEROL SULFATE
     Dosage: CONCENTRATE 2.5 MG/0.5 ML SOLUTION FOR NEBULIZATION.
  10. AMBIEN [Concomitant]
     Active Substance: ZOLPIDEM TARTRATE
     Indication: INSOMNIA
     Route: 048
  11. LACTULOSE. [Concomitant]
     Active Substance: LACTULOSE
     Indication: CONFUSIONAL STATE
     Dosage: 20 GRAM/30 ML, TAKE AS NEEDED
     Route: 048
  12. MONTELUKAST [Concomitant]
     Active Substance: MONTELUKAST SODIUM
     Route: 048
  13. ETHYL CHLORIDE [Concomitant]
     Active Substance: ETHYL CHLORIDE
     Dosage: TOPICAL SPRAY, SPRAY 1 SPRAY TO SKIN AS DIRECTED (APPLY PRE CANNULATION DIALYSIS
     Route: 061
  14. GENTAMICIN. [Concomitant]
     Active Substance: GENTAMICIN
     Indication: PROPHYLAXIS
     Dosage: APPLY A SMALL AMOUNT TO SKIN AS DIRECTED
     Route: 061
  15. SENSIPAR [Concomitant]
     Active Substance: CINACALCET HYDROCHLORIDE
     Dosage: AS DIRECTED
     Route: 048
  16. TERAZOSIN [Concomitant]
     Active Substance: TERAZOSIN HYDROCHLORIDE
     Dosage: AS DIRECTED
     Route: 048
  17. NIFEDIPINE. [Concomitant]
     Active Substance: NIFEDIPINE
     Dosage: EXTENDED RELEASE TABLET, AS DIRECTED
     Route: 048
  18. PROPRANOLOL [Concomitant]
     Active Substance: PROPRANOLOL HYDROCHLORIDE
     Dosage: AS DIRECTED
     Route: 048
  19. MIRCERA [Suspect]
     Active Substance: METHOXY POLYETHYLENE GLYCOL-EPOETIN BETA
     Indication: NEPHROGENIC ANAEMIA
     Dates: start: 20200506
  20. CALCITRIOL. [Concomitant]
     Active Substance: CALCITRIOL
     Dosage: AS DIRECTED
     Route: 048
  21. EPOGEN [Concomitant]
     Active Substance: ERYTHROPOIETIN
     Route: 058
  22. BREO ELLIPTA [Concomitant]
     Active Substance: FLUTICASONE FUROATE\VILANTEROL TRIFENATATE
     Dosage: 100 MCG?25 MCG/DOSE, INHALE 1 PUFF AS DIRECTED
  23. LACTULOSE. [Concomitant]
     Active Substance: LACTULOSE
     Indication: DELIRIUM

REACTIONS (3)
  - Pancytopenia [Recovered/Resolved]
  - Drug hypersensitivity [Unknown]
  - Therapy non-responder [Recovered/Resolved]

NARRATIVE: CASE EVENT DATE: 2020
